FAERS Safety Report 18750261 (Version 2)
Quarter: 2021Q1

REPORT INFORMATION
  Report Type: Spontaneous
  Country: US (occurrence: US)
  Receive Date: 20210118
  Receipt Date: 20210128
  Transmission Date: 20210419
  Serious: Yes (Hospitalization, Other)
  Sender: FDA-Public Use
  Company Number: US-GLENMARK PHARMACEUTICALS-2021GMK051558

PATIENT
  Age: 28 Year
  Sex: Female

DRUGS (10)
  1. ONDANSETRON [Suspect]
     Active Substance: ONDANSETRON
     Dosage: 4 MILLIGRAM (RECEIVED ANOTHER DOSE, ON HER THIRD DAY OF HOSPITALIZATION)
     Route: 065
  2. SERTRALINE [Concomitant]
     Active Substance: SERTRALINE HYDROCHLORIDE
     Indication: MAJOR DEPRESSION
     Dosage: 50 MILLIGRAM, QD (TITRATED UP TO 50 PER DAY (QD)]
     Route: 065
  3. FAMOTIDINE. [Concomitant]
     Active Substance: FAMOTIDINE
     Indication: HYPEREMESIS GRAVIDARUM
     Dosage: 20 MILLIGRAM, BID
     Route: 042
  4. PYRIDOXINE [Concomitant]
     Active Substance: PYRIDOXINE
     Indication: HYPEREMESIS GRAVIDARUM
     Dosage: 25 MILLIGRAM, QID
     Route: 065
  5. HALOPERIDOL. [Concomitant]
     Active Substance: HALOPERIDOL
     Indication: HYPEREMESIS GRAVIDARUM
     Dosage: 20 MILLIGRAM, QD
     Route: 065
  6. DOXYLAMINE SUCCINATE. [Concomitant]
     Active Substance: DOXYLAMINE SUCCINATE
     Indication: HYPEREMESIS GRAVIDARUM
     Dosage: 12.5 MILLIGRAM, QID
     Route: 065
  7. ONDANSETRON [Suspect]
     Active Substance: ONDANSETRON
     Indication: HYPEREMESIS GRAVIDARUM
     Dosage: 4 MILLIGRAM, PRN (AS NEEDED) ON THE FIRST DAY OF ADMISSION AND MAJORITY OF DOSE GIVEN THREE TO EIGHT
     Route: 065
  8. OLANZAPINE. [Concomitant]
     Active Substance: OLANZAPINE
     Indication: MAJOR DEPRESSION
     Dosage: 20 MILLIGRAM, QD (TITRATED UP)
     Route: 065
  9. DOXYLAMINE SUCCINATE. [Concomitant]
     Active Substance: DOXYLAMINE SUCCINATE
     Dosage: 12.5 MILLIGRAM, PRN
     Route: 065
  10. OLANZAPINE. [Concomitant]
     Active Substance: OLANZAPINE
     Indication: PSYCHOTIC SYMPTOM

REACTIONS (4)
  - Hypertransaminasaemia [Recovering/Resolving]
  - Product use in unapproved indication [Unknown]
  - Drug-induced liver injury [Recovering/Resolving]
  - Maternal exposure during pregnancy [Unknown]
